FAERS Safety Report 11828580 (Version 1)
Quarter: 2015Q4

REPORT INFORMATION
  Report Type: Spontaneous
  Country: US (occurrence: US)
  Receive Date: 20151211
  Receipt Date: 20151211
  Transmission Date: 20160305
  Serious: Yes (Other)
  Sender: FDA-Public Use
  Company Number: US-PFIZER INC-2015433664

PATIENT

DRUGS (1)
  1. PREMARIN [Suspect]
     Active Substance: ESTROGENS, CONJUGATED
     Dosage: UNK

REACTIONS (7)
  - Neoplasm malignant [Unknown]
  - Disturbance in attention [Unknown]
  - Anxiety [Unknown]
  - Hyperhidrosis [Unknown]
  - Asthenia [Unknown]
  - Stress [Unknown]
  - Insomnia [Unknown]
